FAERS Safety Report 6983968-9 (Version None)
Quarter: 2010Q3

REPORT INFORMATION
  Report Type: 
  Country: None (occurrence: None)
  Receive Date: 20100915
  Receipt Date: 20090326
  Transmission Date: 20110219
  Serious: No
  Sender: FDA-Public Use
  Company Number: US-WYE-H08754409

PATIENT
  Age: 81 Year
  Sex: Male
  Weight: 68.1 kg

DRUGS (1)
  1. ADVIL LIQUI-GELS [Suspect]
     Indication: ARTHRITIS
     Dosage: 2 LIQUIGELS AS NEEDED
     Route: 048

REACTIONS (1)
  - DYSPHAGIA [None]
